FAERS Safety Report 18122202 (Version 1)
Quarter: 2020Q3

REPORT INFORMATION
  Report Type: Report from Study
  Country: IT (occurrence: IT)
  Receive Date: 20200807
  Receipt Date: 20200807
  Transmission Date: 20201103
  Serious: Yes (Hospitalization)
  Sender: FDA-Public Use
  Company Number: IT-TEVA-2020-IT-1809444

PATIENT
  Age: 50 Year
  Sex: Male

DRUGS (7)
  1. FELISON 30 MG CAPSULE RIGIDE [Concomitant]
     Active Substance: FLURAZEPAM MONOHYDROCHLORIDE
     Dosage: 1 DOSAGE FORMS
  2. RISPERIDONE. [Concomitant]
     Active Substance: RISPERIDONE
     Dosage: 1 MG
  3. OLANZAPINE. [Concomitant]
     Active Substance: OLANZAPINE
     Dosage: 20 MG
  4. ENTUMIN 100 MG/ML GOCCE ORALI, SOLUZIONE [Concomitant]
     Active Substance: CLOTHIAPINE
     Dosage: 15 GTT
  5. SERTRALINE [Concomitant]
     Active Substance: SERTRALINE HYDROCHLORIDE
     Dosage: 100 MG
  6. LORAZEPAM. [Suspect]
     Active Substance: LORAZEPAM
     Indication: INTENTIONAL SELF-INJURY
     Dosage: 10 MG
     Route: 048
     Dates: start: 20200625, end: 20200625
  7. GABAPENTIN. [Suspect]
     Active Substance: GABAPENTIN
     Indication: INTENTIONAL SELF-INJURY
     Dosage: 2.4 GRAM
     Route: 048
     Dates: start: 20200625, end: 20200625

REACTIONS (5)
  - Vomiting [Recovering/Resolving]
  - Drug abuse [Recovering/Resolving]
  - Dyspnoea [Recovering/Resolving]
  - Sopor [Recovering/Resolving]
  - Speech disorder [Recovering/Resolving]

NARRATIVE: CASE EVENT DATE: 20200625
